FAERS Safety Report 9176022 (Version 2)
Quarter: 2013Q2

REPORT INFORMATION
  Report Type: Report from Study
  Country: DE (occurrence: DE)
  Receive Date: 20130320
  Receipt Date: 20130612
  Transmission Date: 20140414
  Serious: Yes (Hospitalization)
  Sender: FDA-Public Use
  Company Number: DE-VERTEX PHARMACEUTICALS INC.-2013-003882

PATIENT
  Sex: Male
  Weight: 80 kg

DRUGS (3)
  1. VX-950 (TELAPREVIR) [Suspect]
     Indication: HEPATITIS C
     Dosage: 2250 MG, QD TABLET
     Route: 048
     Dates: start: 20120620, end: 20120912
  2. PEGINTERFERON ALFA-2A [Suspect]
     Indication: HEPATITIS C
     Dosage: DOSAGE FORM: UNSPECIFIED
     Route: 058
     Dates: start: 20120620, end: 20121017
  3. RIBAVIRIN [Suspect]
     Indication: PRODUCT USED FOR UNKNOWN INDICATION
     Dosage: DOSAGE FORM: TABLET, 1200 (UNIT NOT PROVIDED)
     Route: 048
     Dates: start: 20120620, end: 20121017

REACTIONS (1)
  - International normalised ratio abnormal [Recovered/Resolved]
